FAERS Safety Report 10718369 (Version 2)
Quarter: 2015Q1

REPORT INFORMATION
  Report Type: Spontaneous
  Country: US (occurrence: US)
  Receive Date: 20150119
  Receipt Date: 20150128
  Transmission Date: 20150721
  Serious: Yes (Death)
  Sender: FDA-Public Use
  Company Number: US-009507513-1501USA005431

PATIENT
  Age: 74 Year
  Sex: Male

DRUGS (1)
  1. NOXAFIL [Suspect]
     Active Substance: POSACONAZOLE
     Indication: LEUKAEMIA
     Dosage: 100 MG, 2 TABLETS PER DAY
     Route: 048
     Dates: start: 20141025, end: 20141203

REACTIONS (1)
  - Death [Fatal]

NARRATIVE: CASE EVENT DATE: 20150111
